FAERS Safety Report 13140523 (Version 1)
Quarter: 2017Q1

REPORT INFORMATION
  Report Type: Spontaneous
  Country: HR (occurrence: HR)
  Receive Date: 20170123
  Receipt Date: 20170123
  Transmission Date: 20170428
  Serious: Yes (Other)
  Sender: FDA-Public Use
  Company Number: HR-TEVA-730063ACC

PATIENT
  Age: 44 Year
  Sex: Female

DRUGS (3)
  1. RISSET TABLET 1 MG [Suspect]
     Active Substance: RISPERIDONE
     Route: 048
     Dates: start: 20161015, end: 20161015
  2. NORMABEL [Concomitant]
     Active Substance: DIAZEPAM
     Route: 048
  3. AKINETON [Suspect]
     Active Substance: BIPERIDEN HYDROCHLORIDE
     Route: 048
     Dates: start: 20161015, end: 20161015

REACTIONS (3)
  - Suicide attempt [Unknown]
  - Intentional overdose [Unknown]
  - Somnolence [Unknown]

NARRATIVE: CASE EVENT DATE: 20161015
